FAERS Safety Report 9456234 (Version 3)
Quarter: 2013Q3

REPORT INFORMATION
  Report Type: Spontaneous
  Country: JP (occurrence: None)
  Receive Date: 20130808
  Receipt Date: 20130913
  Transmission Date: 20140515
  Serious: Yes (Other)
  Sender: FDA-Public Use
  Company Number: JP-20130066

PATIENT
  Age: 84 Year
  Sex: Male

DRUGS (3)
  1. LIPIODOL [Suspect]
     Indication: THERAPEUTIC EMBOLISATION
     Dosage: INTRA-ARTERIAL
     Route: 013
     Dates: start: 201007, end: 201007
  2. GELPART [Suspect]
     Indication: THERAPEUTIC EMBOLISATION
     Route: 013
     Dates: start: 201007, end: 201007
  3. EPIRUBICIN (EPIRUBICIN) (EPIRUBICIN) [Concomitant]
     Dates: start: 201007, end: 201007

REACTIONS (10)
  - Shock [None]
  - Off label use [None]
  - Hepatic cirrhosis [None]
  - Disease progression [None]
  - Hepatocellular carcinoma [None]
  - Condition aggravated [None]
  - Oesophageal varices haemorrhage [None]
  - Melaena [None]
  - Haematemesis [None]
  - Ascites [None]
